FAERS Safety Report 4719257-2 (Version None)
Quarter: 2005Q3

REPORT INFORMATION
  Report Type: 
  Country: None (occurrence: None)
  Receive Date: 20050719
  Receipt Date: 20050719
  Transmission Date: 20060218
  Serious: Yes (Life-Threatening)
  Sender: FDA-Public Use
  Company Number: None

PATIENT
  Age: 61 Year
  Sex: Male
  Weight: 63.5036 kg

DRUGS (5)
  1. AVASTIN [Suspect]
     Indication: COLON CANCER METASTATIC
     Dosage: 5 MG/KG WEEKLY INTRAVENOUS
     Route: 042
     Dates: start: 20050712, end: 20050712
  2. IBUPROFEN [Concomitant]
  3. DARVOCET [Concomitant]
  4. PEPCID [Concomitant]
  5. MULTI-VITAMIN [Concomitant]

REACTIONS (3)
  - CATHETER SITE HAEMORRHAGE [None]
  - THROMBOCYTOPENIA [None]
  - WOUND SECRETION [None]
